FAERS Safety Report 21617756 (Version 2)
Quarter: 2022Q4

REPORT INFORMATION
  Report Type: Spontaneous
  Country: NL (occurrence: NL)
  Receive Date: 20221119
  Receipt Date: 20221206
  Transmission Date: 20230113
  Serious: Yes (Other)
  Sender: FDA-Public Use
  Company Number: NL-LRB-00844612

PATIENT
  Sex: Female
  Weight: 60 kg

DRUGS (1)
  1. ETHINYL ESTRADIOL\LEVONORGESTREL [Suspect]
     Active Substance: ETHINYL ESTRADIOL\LEVONORGESTREL
     Indication: Contraception
     Dosage: 1 DOSAGE FORM (30/150 ?G (MICROGRAM)
     Route: 065
     Dates: start: 20220711, end: 20220926

REACTIONS (1)
  - Drug-induced liver injury [Recovering/Resolving]
